FAERS Safety Report 9394855 (Version 1)
Quarter: 2013Q3

REPORT INFORMATION
  Report Type: Spontaneous
  Country: US (occurrence: US)
  Receive Date: 20130711
  Receipt Date: 20130711
  Transmission Date: 20140515
  Serious: No
  Sender: FDA-Public Use
  Company Number: US-009507513-1307USA004655

PATIENT
  Sex: Female

DRUGS (1)
  1. A + D ORIGINAL OINTMENT [Suspect]
     Indication: RASH
     Dosage: UNK, UNKNOWN
     Route: 061

REACTIONS (2)
  - Rash [Recovering/Resolving]
  - Drug ineffective [Unknown]
